FAERS Safety Report 10481178 (Version 1)
Quarter: 2014Q3

REPORT INFORMATION
  Report Type: Spontaneous
  Country: JP (occurrence: JP)
  Receive Date: 20140929
  Receipt Date: 20140929
  Transmission Date: 20150326
  Serious: Yes (Other)
  Sender: FDA-Public Use
  Company Number: JP-ROXANE LABORATORIES, INC.-2014-RO-01456RO

PATIENT
  Age: 28 Year
  Sex: Male

DRUGS (4)
  1. CYCLOSPORINE. [Suspect]
     Active Substance: CYCLOSPORINE
     Indication: HISTIOCYTOSIS HAEMATOPHAGIC
     Dosage: 120 MG
     Route: 065
  2. ETOPOSIDE. [Suspect]
     Active Substance: ETOPOSIDE
     Indication: HISTIOCYTOSIS HAEMATOPHAGIC
     Route: 065
  3. DEXAMETHASONE. [Suspect]
     Active Substance: DEXAMETHASONE
     Indication: HISTIOCYTOSIS HAEMATOPHAGIC
     Dosage: 16.5 MG
     Route: 065
  4. ITRACONAZOLE. [Suspect]
     Active Substance: ITRACONAZOLE
     Indication: ANTIFUNGAL PROPHYLAXIS
     Dosage: 200 MG
     Route: 048

REACTIONS (5)
  - Pseudomonas infection [Unknown]
  - Necrotising fasciitis [Unknown]
  - Sepsis [Unknown]
  - Swelling face [Recovered/Resolved]
  - Fungal infection [Recovered/Resolved]

NARRATIVE: CASE EVENT DATE: 201201
